FAERS Safety Report 7874696 (Version 5)
Quarter: 2015Q1

REPORT INFORMATION
  Report Type: Report from Study
  Country: FR (occurrence: FR)
  Receive Date: 20110328
  Receipt Date: 20150123
  Transmission Date: 20150721
  Serious: Yes (Hospitalization)
  Sender: FDA-Public Use
  Company Number: FR-ROCHE-GNE315481

PATIENT
  Age: 16 Year
  Sex: Male

DRUGS (1)
  1. SOMATROPIN [Suspect]
     Active Substance: SOMATROPIN
     Indication: GROWTH HORMONE DEFICIENCY
     Dosage: 0.06 MG/KG, QD, FORM STRENGTH 10 MG/2ML
     Route: 058
     Dates: start: 20100215, end: 20110221

REACTIONS (1)
  - Astrocytoma [Recovered/Resolved]

NARRATIVE: CASE EVENT DATE: 20110308
